FAERS Safety Report 10800616 (Version 1)
Quarter: 2015Q1

REPORT INFORMATION
  Report Type: Report from Study
  Country: GB (occurrence: GB)
  Receive Date: 20150216
  Receipt Date: 20150216
  Transmission Date: 20150721
  Serious: Yes (Other)
  Sender: FDA-Public Use
  Company Number: GB-MYLANLABS-2015M1004667

PATIENT

DRUGS (1)
  1. OCTREOTIDE [Suspect]
     Active Substance: OCTREOTIDE
     Indication: GASTROINTESTINAL HAEMORRHAGE
     Dosage: 9.7MG/KG/DAY IN THREE DIVIDED DOSES;10MCG/KG/DAY
     Route: 058

REACTIONS (2)
  - Growth hormone deficiency [Recovering/Resolving]
  - Hypothyroidism [Recovering/Resolving]
